FAERS Safety Report 17420200 (Version 2)
Quarter: 2021Q2

REPORT INFORMATION
  Report Type: Spontaneous
  Country: US (occurrence: US)
  Receive Date: 20200214
  Receipt Date: 20210607
  Transmission Date: 20210716
  Serious: Yes (Disabling)
  Sender: FDA-Public Use
  Company Number: US-TEVA-2020-US-1183391

PATIENT
  Age: 57 Year
  Sex: Female
  Weight: 108 kg

DRUGS (98)
  1. CITALOPRAM [Concomitant]
     Active Substance: CITALOPRAM HYDROBROMIDE
     Dosage: 20 MILLIGRAM DAILY;
     Route: 048
  2. CLONIDINE HCL [Concomitant]
     Active Substance: CLONIDINE HYDROCHLORIDE
     Dosage: .2 MILLIGRAM DAILY; EVENING
     Route: 048
  3. METOPROLOL TARTRATE. [Concomitant]
     Active Substance: METOPROLOL TARTRATE
     Dosage: WITH MEALS
     Route: 048
  4. PERCOCET [Concomitant]
     Active Substance: ACETAMINOPHEN\OXYCODONE HYDROCHLORIDE
     Indication: PAIN
     Dosage: 5 MG OXYCODONE/ 325 MG PARACETAMOL AS NEEDED
     Route: 048
     Dates: start: 20150904, end: 20150904
  5. ATIVAN [Concomitant]
     Active Substance: LORAZEPAM
     Dosage: OVER 2 MINUTES
     Route: 042
     Dates: start: 20150930
  6. DECADRON [Concomitant]
     Active Substance: DEXAMETHASONE
     Dosage: OVER 15 MINUTES
     Route: 042
     Dates: start: 20131231
  7. NEULASTA [Concomitant]
     Active Substance: PEGFILGRASTIM
     Route: 058
     Dates: start: 20131030
  8. EMEND [Concomitant]
     Active Substance: APREPITANT
     Dosage: OVER 30 MINUTES
     Route: 042
     Dates: start: 20131231
  9. EMEND [Concomitant]
     Active Substance: APREPITANT
     Dosage: OVER 30 MINUTES
     Route: 042
     Dates: start: 20140121
  10. EPIRUBICIN [Concomitant]
     Active Substance: EPIRUBICIN
     Dosage: OVER 10 MINUTES CYCLE 1: 75MG/M2 IV DAY 1 Q3 WEEKS
     Route: 042
     Dates: start: 20131210
  11. AMLODIPINE [Concomitant]
     Active Substance: AMLODIPINE BESYLATE
     Route: 048
  12. VOLTAREN [Concomitant]
     Active Substance: DICLOFENAC SODIUM
     Dosage: APPLY 2G TO THE AFFECTED AREA
     Route: 061
     Dates: start: 20151020
  13. ELLENCE [Suspect]
     Active Substance: EPIRUBICIN HYDROCHLORIDE
     Indication: BREAST CANCER FEMALE
     Dosage: 75 MG/M2 IV EVERY 3 WEEKS FOR 3 CYCLES
     Route: 042
     Dates: start: 20150930, end: 20151110
  14. EFUDEX [Concomitant]
     Active Substance: FLUOROURACIL
     Indication: BREAST CANCER FEMALE
     Dosage: CYCLE 1: 1302  MG OVER 10 MIN, CYCLE 2: 1290 MG, CYCLE 3: 1290 MG.
     Route: 042
     Dates: start: 20150930, end: 20151110
  15. LANTUS [Concomitant]
     Active Substance: INSULIN GLARGINE
     Dosage: 100 UNIT/ML AS PER INSULIN PROTOCOL
     Route: 058
  16. ATIVAN [Concomitant]
     Active Substance: LORAZEPAM
     Route: 042
     Dates: start: 20130910
  17. ATIVAN [Concomitant]
     Active Substance: LORAZEPAM
     Dosage: OVER 5 MINUTES
     Route: 042
     Dates: start: 20131029
  18. ATIVAN [Concomitant]
     Active Substance: LORAZEPAM
     Dosage: OVER 2 MINUTES
     Route: 042
     Dates: start: 20140211
  19. DECADRON [Concomitant]
     Active Substance: DEXAMETHASONE
     Dosage: OVER 20 MINUTES
     Route: 042
     Dates: start: 20131029
  20. ZOFRAN [Concomitant]
     Active Substance: ONDANSETRON HYDROCHLORIDE
     Route: 042
     Dates: start: 20130910
  21. ZOFRAN [Concomitant]
     Active Substance: ONDANSETRON HYDROCHLORIDE
     Dosage: OVER 20 MINUTES
     Route: 042
     Dates: start: 20131029
  22. ZOFRAN [Concomitant]
     Active Substance: ONDANSETRON HYDROCHLORIDE
     Dosage: OVER 15 MINUTES
     Route: 042
     Dates: start: 20131119
  23. OMEPRAZOLE. [Concomitant]
     Active Substance: OMEPRAZOLE
     Dosage: 20 MILLIGRAM DAILY; DELAYED RELEASE CAPSULE, BEFORE MEALS
     Route: 048
  24. PERI?COLACE [Concomitant]
     Active Substance: CASANTHRANOL\DOCUSATE SODIUM
     Dosage: 8.6 MG SENNOSIDES AND 50 MG DOCUSATE
     Route: 048
     Dates: start: 20131028
  25. EMEND [Concomitant]
     Active Substance: APREPITANT
     Dosage: OVER 30 MINUTES
     Route: 042
     Dates: start: 20151110
  26. ALOXI [Concomitant]
     Active Substance: PALONOSETRON HYDROCHLORIDE
     Dosage: OVER 15 MINUTES
     Route: 042
     Dates: start: 20140121
  27. PROPYLTHIOURACIL. [Concomitant]
     Active Substance: PROPYLTHIOURACIL
     Route: 048
  28. PROMETHAZINE HCL [Concomitant]
     Active Substance: PROMETHAZINE HYDROCHLORIDE
     Dosage: 1 TAB EVERY 4?6 HOURS AS NEEDED
     Route: 048
     Dates: start: 20150930, end: 20150930
  29. ATIVAN [Concomitant]
     Active Substance: LORAZEPAM
     Dosage: OVER 10 MINUTES
     Route: 042
     Dates: start: 20131231
  30. ATIVAN [Concomitant]
     Active Substance: LORAZEPAM
     Dosage: OVER 2 MINUTES
     Route: 042
     Dates: start: 20140121
  31. ATIVAN [Concomitant]
     Active Substance: LORAZEPAM
     Dosage: OVER 2 MINUTES
     Route: 042
     Dates: start: 20151021
  32. DECADRON [Concomitant]
     Active Substance: DEXAMETHASONE
     Dosage: OVER 20 MINUTES
     Route: 042
     Dates: start: 20131210
  33. DECADRON [Concomitant]
     Active Substance: DEXAMETHASONE
     Dosage: OVER 15 MINUTES
     Route: 042
     Dates: start: 20151110
  34. ZOFRAN [Concomitant]
     Active Substance: ONDANSETRON HYDROCHLORIDE
     Dosage: OVER 15 MINUTES
     Route: 042
     Dates: start: 20131231
  35. ZOFRAN [Concomitant]
     Active Substance: ONDANSETRON HYDROCHLORIDE
     Dosage: OVER 15 MINUTES
     Route: 042
     Dates: start: 20140211
  36. ZOFRAN [Concomitant]
     Active Substance: ONDANSETRON HYDROCHLORIDE
     Dosage: OVER 15 MINUTES
     Route: 042
     Dates: start: 20150930
  37. NEULASTA [Concomitant]
     Active Substance: PEGFILGRASTIM
     Route: 058
     Dates: start: 20131211
  38. NEULASTA [Concomitant]
     Active Substance: PEGFILGRASTIM
     Route: 058
     Dates: start: 20151110
  39. NORVASC [Concomitant]
     Active Substance: AMLODIPINE BESYLATE
     Route: 048
  40. TYLENOL [Concomitant]
     Active Substance: ACETAMINOPHEN
     Dosage: 2600 MILLIGRAM DAILY;
     Route: 048
     Dates: start: 20130709, end: 20130712
  41. MAGNESIUM SULFATE. [Concomitant]
     Active Substance: MAGNESIUM SULFATE
     Dosage: OVER 2 HOURS
     Route: 042
     Dates: start: 20140121
  42. MAGNESIUM SULFATE. [Concomitant]
     Active Substance: MAGNESIUM SULFATE
     Dosage: OVER 2 HOURS
     Route: 042
     Dates: start: 20151230
  43. EPIRUBICIN [Concomitant]
     Active Substance: EPIRUBICIN
     Dosage: OVER 15 MINUTES
     Route: 042
     Dates: start: 20150930
  44. REGLAN [Concomitant]
     Active Substance: METOCLOPRAMIDE HYDROCHLORIDE
     Dosage: 1.25 MILLIGRAM DAILY; EVERY DAY 30 MINUTES BEFORE MEALS AND AT BEDTIME
     Route: 048
  45. LEVEMIR [Concomitant]
     Active Substance: INSULIN DETEMIR
     Dosage: 100 UNITS/ML
     Route: 058
  46. LACTULOSE. [Concomitant]
     Active Substance: LACTULOSE
     Dosage: 10 GRAM/ 15 ML ORAL SOLUTION TAKE 15 MILLILITER
     Route: 048
     Dates: start: 20140210
  47. DOCETAXEL SANOFI AVENTIS [Suspect]
     Active Substance: DOCETAXEL
     Indication: TRIPLE NEGATIVE BREAST CANCER
     Dosage: 75 MG/M2 IV CYCLE EVERY 3 WEEKS FOR 4 CYCLES
     Route: 042
     Dates: start: 20130910, end: 20131119
  48. DOCETAXEL SANOFI AVENTIS [Suspect]
     Active Substance: DOCETAXEL
     Indication: BREAST CANCER FEMALE
     Dosage: 75 MG/M2 Q3 WEEKS 1 CYCLE
     Route: 042
     Dates: start: 20151208, end: 20151208
  49. ELLENCE [Suspect]
     Active Substance: EPIRUBICIN HYDROCHLORIDE
     Indication: TRIPLE NEGATIVE BREAST CANCER
     Dosage: 75 MG/M2 IV EVERY 3 WEEKS FOR 3 CYCLES
     Route: 042
     Dates: start: 20131210, end: 20140121
  50. DEXAMETHASONE. [Concomitant]
     Active Substance: DEXAMETHASONE
     Dosage: 4 MILLIGRAM DAILY; FOR 3 DAYS STARTING THE DAY BEFORE CHEMOTHERAPY
     Route: 048
     Dates: start: 20151207, end: 20151209
  51. DECADRON [Concomitant]
     Active Substance: DEXAMETHASONE
     Dosage: OVER 15 MINUTES
     Route: 042
     Dates: start: 20131119
  52. NEULASTA [Concomitant]
     Active Substance: PEGFILGRASTIM
     Route: 058
     Dates: start: 20150930
  53. NEULASTA [Concomitant]
     Active Substance: PEGFILGRASTIM
     Route: 058
     Dates: start: 20151021
  54. PERI?COLACE [Concomitant]
     Active Substance: CASANTHRANOL\DOCUSATE SODIUM
     Dosage: 8.6 MG SENNOSIDES AND 50 MG DOCUSATE
     Route: 048
  55. DOCETAXEL SAGENT [Suspect]
     Active Substance: DOCETAXEL
     Indication: TRIPLE NEGATIVE BREAST CANCER
     Dosage: EVERY 3 WEEKS FOR 4 CYCLES
     Route: 042
     Dates: start: 20130910, end: 20131119
  56. DECADRON [Concomitant]
     Active Substance: DEXAMETHASONE
     Route: 042
     Dates: start: 20130910
  57. DECADRON [Concomitant]
     Active Substance: DEXAMETHASONE
     Dosage: OVER 15 MINUTES
     Route: 042
     Dates: start: 20151021
  58. ZOFRAN [Concomitant]
     Active Substance: ONDANSETRON HYDROCHLORIDE
     Dosage: OVER 20 MINUTES
     Route: 042
     Dates: start: 20131210
  59. ZOFRAN [Concomitant]
     Active Substance: ONDANSETRON HYDROCHLORIDE
     Dosage: OVER 15 MINUTES
     Route: 042
     Dates: start: 20151021
  60. LEVAQUIN [Concomitant]
     Active Substance: LEVOFLOXACIN
     Route: 048
  61. EMEND [Concomitant]
     Active Substance: APREPITANT
     Dosage: OVER 30 MINUTES
     Route: 042
     Dates: start: 20150930
  62. CYTOXAN [Suspect]
     Active Substance: CYCLOPHOSPHAMIDE
     Indication: TRIPLE NEGATIVE BREAST CANCER
     Dosage: 600 MG/M2 IV FOR EVERY 3 WEEKS FOR 4 CYCLES
     Route: 042
     Dates: start: 20130910, end: 20131119
  63. CYTOXAN [Suspect]
     Active Substance: CYCLOPHOSPHAMIDE
     Indication: BREAST CANCER FEMALE
     Dosage: EVERY 3 WEEKS FOR 3 CYCLES
     Route: 042
     Dates: start: 20150930, end: 20151110
  64. HYDROCHLOROTHIAZIDE. [Concomitant]
     Active Substance: HYDROCHLOROTHIAZIDE
     Route: 048
  65. METFORMIN HCL [Concomitant]
     Active Substance: METFORMIN HYDROCHLORIDE
     Dosage: MORNING AND EVENING MEALS
     Route: 048
  66. PROMETHAZINE HCL [Concomitant]
     Active Substance: PROMETHAZINE HYDROCHLORIDE
     Dosage: 1 TAB EVERY 4?6 HOURS AS NEEDED
     Route: 048
  67. ATIVAN [Concomitant]
     Active Substance: LORAZEPAM
     Dosage: OVER 10 MINUTES
     Route: 042
     Dates: start: 20131119
  68. DECADRON [Concomitant]
     Active Substance: DEXAMETHASONE
     Dosage: OVER 15 MINUTES
     Route: 042
     Dates: start: 20140121
  69. DECADRON [Concomitant]
     Active Substance: DEXAMETHASONE
     Dosage: OVER 15 MINUTES
     Route: 042
     Dates: start: 20140211
  70. ZOFRAN [Concomitant]
     Active Substance: ONDANSETRON HYDROCHLORIDE
     Dosage: OVER 15 MINUTES
     Route: 042
     Dates: start: 20140121
  71. MAGNESIUM SULFATE. [Concomitant]
     Active Substance: MAGNESIUM SULFATE
     Dosage: OVER 2 HOURS
     Route: 042
     Dates: start: 20131029
  72. EMEND [Concomitant]
     Active Substance: APREPITANT
     Dosage: OVER 30 MINUTES
     Route: 042
     Dates: start: 20151021
  73. SILVADENE [Concomitant]
     Active Substance: SILVER SULFADIAZINE
     Dosage: .5 PERCENT DAILY; APPLY BY TOPICAL ROUTE 2 TIMES EVERY DAY A 1/16 INCH (1.5 MM) THICK LAYER TO ENTIR
     Route: 061
     Dates: start: 20140612
  74. MILK OF MAGNESIA [Concomitant]
     Active Substance: MAGNESIUM HYDROXIDE
     Indication: CONSTIPATION
     Dosage: 400 MG/5 ML TAKE 30 MILLILITER EVERY DAY AS NEEDED
     Route: 048
  75. DOCETAXEL SAGENT [Suspect]
     Active Substance: DOCETAXEL
     Indication: BREAST CANCER FEMALE
     Dosage: FOR 1 CYCLE
     Route: 042
     Dates: start: 20151208, end: 20151208
  76. ASPIRIN. [Concomitant]
     Active Substance: ASPIRIN
     Route: 048
     Dates: start: 20130625, end: 20130702
  77. ATORVASTATIN CALCIUM. [Concomitant]
     Active Substance: ATORVASTATIN CALCIUM
     Route: 048
  78. CLONIDINE HCL [Concomitant]
     Active Substance: CLONIDINE HYDROCHLORIDE
     Dosage: .1 MILLIGRAM DAILY;
     Route: 048
  79. LISINOPRIL. [Concomitant]
     Active Substance: LISINOPRIL
     Dosage: 40 MILLIGRAM DAILY;
     Route: 048
  80. ATIVAN [Concomitant]
     Active Substance: LORAZEPAM
     Dosage: OVER 5 MINUTES
     Route: 042
     Dates: start: 20131210
  81. DECADRON [Concomitant]
     Active Substance: DEXAMETHASONE
     Dosage: OVER 15 MINUTES
     Route: 042
     Dates: start: 20150930
  82. TYLENOL [Concomitant]
     Active Substance: ACETAMINOPHEN
     Indication: PAIN
     Dosage: AS NEEDED
     Route: 048
  83. PERI?COLACE [Concomitant]
     Active Substance: CASANTHRANOL\DOCUSATE SODIUM
     Dosage: 8.6 MG SENNOSIDES AND 50 MG DOCUSATE
     Route: 048
     Dates: start: 20150930
  84. EMEND [Concomitant]
     Active Substance: APREPITANT
     Dosage: OVER 30 MINUTES
     Route: 042
     Dates: start: 20131210
  85. EPIRUBICIN [Concomitant]
     Active Substance: EPIRUBICIN
     Dosage: OVER 15 MINUTES CYCLE 2 75MG/M2 IV DAY 1 Q3 WEEKS
     Route: 042
     Dates: start: 20131231
  86. EPIRUBICIN [Concomitant]
     Active Substance: EPIRUBICIN
     Dosage: OVER 10 MINUTES
     Route: 042
     Dates: start: 20140211
  87. ASPIRIN. [Concomitant]
     Active Substance: ASPIRIN
     Route: 048
     Dates: start: 20130703, end: 20130712
  88. BUPROPION HYDROCHLORIDE SR [Concomitant]
     Active Substance: BUPROPION HYDROCHLORIDE
     Dosage: SUSTAINED RELEASE
     Route: 048
  89. ZOFRAN [Concomitant]
     Active Substance: ONDANSETRON HYDROCHLORIDE
     Dosage: OVER 15 MINUTES
     Route: 042
     Dates: start: 20151110
  90. NEULASTA [Concomitant]
     Active Substance: PEGFILGRASTIM
     Route: 058
     Dates: start: 20130911
  91. NEULASTA [Concomitant]
     Active Substance: PEGFILGRASTIM
     Route: 058
     Dates: start: 20140212
  92. MAGNESIUM SULFATE. [Concomitant]
     Active Substance: MAGNESIUM SULFATE
     Dosage: OVER 60 MINUTES
     Route: 042
     Dates: start: 20131119
  93. SIMVASTATIN. [Concomitant]
     Active Substance: SIMVASTATIN
     Dosage: EVENING
     Route: 048
  94. EPIRUBICIN [Concomitant]
     Active Substance: EPIRUBICIN
     Dosage: OVER 15 MINUTES CYCLE 3 75MG/M2 IV DAY 1 Q3 WEEKS
     Route: 042
     Dates: start: 20140121
  95. EPIRUBICIN [Concomitant]
     Active Substance: EPIRUBICIN
     Dosage: OVER 10 MINUTES
     Route: 042
     Dates: start: 20151021
  96. EPIRUBICIN [Concomitant]
     Active Substance: EPIRUBICIN
     Dosage: OVER 15 MINUTES
     Route: 042
     Dates: start: 20151110
  97. ALOXI [Concomitant]
     Active Substance: PALONOSETRON HYDROCHLORIDE
     Dosage: OVER 15 MINUTES
     Route: 042
     Dates: start: 20140211
  98. ALENDRONATE [Concomitant]
     Active Substance: ALENDRONATE SODIUM
     Dosage: 10 MILLIGRAM DAILY; EVERY DAY IN MORNING, AT LEAST 30 MIN BEFORE FIRST FOOD BEVERAGE OR MEDICATION O
     Route: 048

REACTIONS (8)
  - Hair texture abnormal [Not Recovered/Not Resolved]
  - Nausea [Recovered/Resolved]
  - Gastroenteritis [Recovered/Resolved]
  - Madarosis [Not Recovered/Not Resolved]
  - Productive cough [Recovered/Resolved]
  - Alopecia areata [Not Recovered/Not Resolved]
  - Diarrhoea [Recovered/Resolved]
  - Hair colour changes [Not Recovered/Not Resolved]

NARRATIVE: CASE EVENT DATE: 201309
